FAERS Safety Report 15723762 (Version 1)
Quarter: 2018Q4

REPORT INFORMATION
  Report Type: Spontaneous
  Country: US (occurrence: US)
  Receive Date: 20181214
  Receipt Date: 20181214
  Transmission Date: 20190205
  Serious: Yes (Other)
  Sender: FDA-Public Use
  Company Number: US-JNJFOC-20181208589

PATIENT
  Sex: Male
  Weight: 68.04 kg

DRUGS (8)
  1. TRULANCE [Concomitant]
     Active Substance: PLECANATIDE
     Route: 065
  2. XARELTO [Suspect]
     Active Substance: RIVAROXABAN
     Indication: CEREBROVASCULAR ACCIDENT PROPHYLAXIS
     Route: 048
     Dates: start: 201705
  3. HIPREX [Concomitant]
     Active Substance: METHENAMINE HIPPURATE
     Route: 065
  4. TESTOSTERONE. [Concomitant]
     Active Substance: TESTOSTERONE
     Route: 065
  5. FLECAINIDE [Concomitant]
     Active Substance: FLECAINIDE
     Route: 065
  6. CRESTOR [Concomitant]
     Active Substance: ROSUVASTATIN CALCIUM
     Indication: BLOOD CHOLESTEROL
     Route: 065
  7. XARELTO [Suspect]
     Active Substance: RIVAROXABAN
     Indication: ATRIAL FIBRILLATION
     Route: 048
     Dates: start: 201705
  8. VESICARE [Concomitant]
     Active Substance: SOLIFENACIN SUCCINATE
     Indication: PROPHYLAXIS
     Route: 065

REACTIONS (4)
  - Prostate infection [Recovering/Resolving]
  - Weight decreased [Unknown]
  - Blood urine present [Unknown]
  - Bladder catheterisation [Unknown]

NARRATIVE: CASE EVENT DATE: 2017
